FAERS Safety Report 8119034-9 (Version None)
Quarter: 2012Q1

REPORT INFORMATION
  Report Type: 
  Country: None (occurrence: None)
  Receive Date: 20120207
  Receipt Date: 20120123
  Transmission Date: 20120608
  Serious: Yes (Other)
  Sender: FDA-Public Use
  Company Number: US-WATSON-2012-01061

PATIENT
  Sex: Female

DRUGS (1)
  1. FENTANYL-75 [Suspect]
     Indication: PRODUCT USED FOR UNKNOWN INDICATION
     Dosage: UNK
     Route: 062
     Dates: start: 20110112

REACTIONS (13)
  - DYSPNOEA [None]
  - ANAEMIA [None]
  - EYE DISCHARGE [None]
  - RESPIRATORY FAILURE [None]
  - UNRESPONSIVE TO STIMULI [None]
  - CONFUSIONAL STATE [None]
  - PERONEAL NERVE PALSY [None]
  - RENAL FAILURE ACUTE [None]
  - RHABDOMYOLYSIS [None]
  - DIZZINESS [None]
  - ASTHENIA [None]
  - SPEECH DISORDER [None]
  - HYPERKALAEMIA [None]
